FAERS Safety Report 12059707 (Version 1)
Quarter: 2016Q1

REPORT INFORMATION
  Report Type: Spontaneous
  Country: US (occurrence: None)
  Receive Date: 20160209
  Receipt Date: 20160209
  Transmission Date: 20160526
  Serious: No
  Sender: FDA-Public Use
  Company Number: None

PATIENT
  Age: 26 Year
  Sex: Male

DRUGS (1)
  1. HUMIRA [Suspect]
     Active Substance: ADALIMUMAB
     Dosage: EVERY 14 DAYS, SUBCTANEOUS INTO ABDOMEN
     Route: 058
     Dates: start: 20150413

REACTIONS (2)
  - Wrong technique in product usage process [None]
  - Injection site infection [None]

NARRATIVE: CASE EVENT DATE: 20160129
